FAERS Safety Report 4974444-3 (Version None)
Quarter: 2006Q2

REPORT INFORMATION
  Report Type: 
  Country: None (occurrence: None)
  Receive Date: 20060410
  Receipt Date: 20060327
  Transmission Date: 20061013
  Serious: Yes (Hospitalization, Other)
  Sender: FDA-Public Use
  Company Number: HQWYE355516MAR06

PATIENT
  Age: 49 Year
  Sex: Male

DRUGS (9)
  1. PANTOPRAZOLE SODIUM [Suspect]
     Dosage: 40 MG 1X PER 1 DAY
     Route: 048
     Dates: start: 20050815, end: 20050930
  2. PREDNISONE TAB [Concomitant]
  3. GINSENG (GINSENG) [Concomitant]
  4. UNSPECIFIED HERBAL PRODUCT (UNSPECIFIED HERBAL PRODUCT) [Concomitant]
  5. KAVA-KAVA RHIZOMA (KAVA-KAVA RHIZOMA,) [Concomitant]
     Indication: PHYTOTHERAPY
     Dosage: ^DF^
     Dates: end: 20060201
  6. IMMUNE GLOBULIN INTRAVENOUS (HUMAN) [Suspect]
     Dosage: 30 MG 1X PER 1 MTH
     Route: 042
     Dates: start: 20051001, end: 20060102
  7. RENNIE (CALCIUM CARBONATE/MAGNESIUM CARBONATE/PEPPERMINT OIL,) [Suspect]
     Dosage: ^DF^
     Route: 048
     Dates: start: 20050815, end: 20050930
  8. ... [Concomitant]
  9. ... [Concomitant]

REACTIONS (1)
  - HEPATITIS TOXIC [None]
